FAERS Safety Report 22633187 (Version 1)
Quarter: 2023Q2

REPORT INFORMATION
  Report Type: Report from Study
  Country: HN (occurrence: HN)
  Receive Date: 20230623
  Receipt Date: 20230623
  Transmission Date: 20230721
  Serious: Yes (Other)
  Sender: FDA-Public Use
  Company Number: HN-BIOGEN-2023BI01212016

PATIENT
  Sex: Female
  Weight: 46.8 kg

DRUGS (6)
  1. AVONEX [Suspect]
     Active Substance: INTERFERON BETA-1A
     Indication: Relapsing multiple sclerosis
     Route: 050
     Dates: start: 20190822
  2. AVONEX [Suspect]
     Active Substance: INTERFERON BETA-1A
  3. AVONEX [Suspect]
     Active Substance: INTERFERON BETA-1A
  4. AVONEX [Suspect]
     Active Substance: INTERFERON BETA-1A
  5. ATACAND [Concomitant]
     Active Substance: CANDESARTAN CILEXETIL
     Indication: Blood pressure abnormal
     Dosage: 32/12.5 MG DAILY
     Route: 050
  6. Dorixina NOS [Concomitant]
     Indication: Myalgia
     Dosage: PRN
     Route: 050
     Dates: start: 202210

REACTIONS (7)
  - Epilepsy [Unknown]
  - Bipolar disorder [Unknown]
  - Dyspepsia [Recovered/Resolved]
  - Product dose omission issue [Recovered/Resolved]
  - Liver injury [Unknown]
  - Pruritus [Not Recovered/Not Resolved]
  - Pruritus [Not Recovered/Not Resolved]

NARRATIVE: CASE EVENT DATE: 20220101
